FAERS Safety Report 24989264 (Version 1)
Quarter: 2025Q1

REPORT INFORMATION
  Report Type: Spontaneous
  Country: US (occurrence: US)
  Receive Date: 20250220
  Receipt Date: 20250220
  Transmission Date: 20250408
  Serious: No
  Sender: JOHNSON AND JOHNSON
  Company Number: US-JNJFOC-20250140845

PATIENT
  Age: 9 Decade
  Sex: Male

DRUGS (2)
  1. XARELTO [Suspect]
     Active Substance: RIVAROXABAN
     Indication: Pulmonary embolism
     Route: 048
  2. XARELTO [Suspect]
     Active Substance: RIVAROXABAN
     Route: 048

REACTIONS (10)
  - Cranial nerve disorder [Unknown]
  - Dermatitis [Unknown]
  - Lip swelling [Unknown]
  - Dysphonia [Unknown]
  - Arthralgia [Unknown]
  - Proteinuria [Unknown]
  - Fatigue [Unknown]
  - Muscular weakness [Unknown]
  - Blood creatinine increased [Unknown]
  - Haemorrhage subcutaneous [Unknown]
